FAERS Safety Report 15147540 (Version 1)
Quarter: 2018Q3

REPORT INFORMATION
  Report Type: Other
  Country: AT (occurrence: AT)
  Receive Date: 20180716
  Receipt Date: 20180716
  Transmission Date: 20181010
  Serious: Yes (Other)
  Sender: FDA-Public Use
  Company Number: AT-DENTSPLY-2018SCDP000289

PATIENT
  Age: 13 Year
  Sex: Male

DRUGS (1)
  1. PRILOCAINE AND LIDOCAINE [Suspect]
     Active Substance: LIDOCAINE\PRILOCAINE
     Indication: PRODUCT USED FOR UNKNOWN INDICATION
     Dosage: ZUR OBERFLACHENANASTHESIE
     Route: 061
     Dates: start: 20180404, end: 20180404

REACTIONS (1)
  - Type IV hypersensitivity reaction [Recovered/Resolved]

NARRATIVE: CASE EVENT DATE: 20180404
